FAERS Safety Report 10368779 (Version 1)
Quarter: 2014Q1

REPORT INFORMATION
  Report Type: Spontaneous
  Country: US (occurrence: None)
  Receive Date: 20140306
  Receipt Date: 20140306
  Transmission Date: 20141002
  Serious: Yes (Life-Threatening, Hospitalization)
  Sender: FDA-Public Use
  Company Number: 163-21880-13022919

PATIENT
  Age: 71 Year
  Sex: Female

DRUGS (9)
  1. REVLIMID (LENALIDOMIDE) (25 MILLIGRAM, CAPSULES) [Suspect]
     Indication: PLASMA CELL MYELOMA
     Dosage: 01-AUG-2012 - TEMPORARILY INTERRUPTED?25 MG, 21 IN 21 D, PO
     Route: 048
     Dates: start: 20120801
  2. OMEPRAZOLE (OMEPRAZOLE) (UNKNOWN) [Concomitant]
  3. DOXEPIN (DOXEPIN) (UNKNOWN) [Concomitant]
  4. GABAPENTIN (GABAPENTIN) (UNKNOWN) (GABAPENTIN) [Concomitant]
  5. METOLAZONE (METOLAZONE) (UNKNOWN) [Concomitant]
  6. FUROSEMIDE (FUROSEMIDE) (UNKNOWN) [Concomitant]
  7. CITALOPRAM (CITALOPRAM) (UNKNOWN) [Concomitant]
  8. LIPITOR (ATORVASTATIN) (UNKNOWN) [Concomitant]
  9. DIOVAN (VALSARTAN) (UNKNOWN) [Concomitant]

REACTIONS (1)
  - White blood cell count decreased [None]
